FAERS Safety Report 8969522 (Version 1)
Quarter: 2012Q4

REPORT INFORMATION
  Report Type: 
  Country: US (occurrence: US)
  Receive Date: 20121218
  Receipt Date: 20121218
  Transmission Date: 20130627
  Serious: No
  Sender: FDA-Public Use
  Company Number: US-BRISTOL-MYERS SQUIBB COMPANY-16584187

PATIENT
  Age: 67 Year
  Sex: Female

DRUGS (13)
  1. ABILIFY [Suspect]
     Indication: BIPOLAR DISORDER
     Route: 048
     Dates: start: 20110430, end: 20120430
  2. LOPERAMIDE HCL [Suspect]
  3. PHENERGAN [Suspect]
  4. ALPRAZOLAM [Suspect]
  5. ACETAMINOPHEN [Concomitant]
  6. VERAPAMIL [Concomitant]
  7. ASPIRIN [Concomitant]
  8. AMBIEN [Concomitant]
  9. LEVOTHYROXINE [Concomitant]
  10. ATENOLOL [Concomitant]
  11. HYDROCODONE [Concomitant]
  12. PRILOSEC [Concomitant]
  13. NAPROSYN [Concomitant]

REACTIONS (1)
  - Tardive dyskinesia [Not Recovered/Not Resolved]
